FAERS Safety Report 25169323 (Version 1)
Quarter: 2025Q2

REPORT INFORMATION
  Report Type: Spontaneous
  Country: IT (occurrence: IT)
  Receive Date: 20250407
  Receipt Date: 20250407
  Transmission Date: 20250717
  Serious: Yes (Other)
  Sender: MYLAN
  Company Number: None

PATIENT
  Age: 89 Year
  Sex: Female

DRUGS (7)
  1. XANAX [Interacting]
     Active Substance: ALPRAZOLAM
     Indication: Agitation
     Dates: start: 20250316, end: 20250318
  2. XANAX [Interacting]
     Active Substance: ALPRAZOLAM
     Indication: Insomnia
  3. FUROSEMIDE SODIUM [Interacting]
     Active Substance: FUROSEMIDE SODIUM
     Indication: Cardiac failure
     Dosage: 10 MILLIGRAM PER MILLILITRE, TID (20 MG/2 ML VIAL 3 TIMES DAILY)
     Dates: start: 20250316
  4. ALLOPURINOL [Concomitant]
     Active Substance: ALLOPURINOL
     Indication: Hyperuricaemia
     Dosage: 300 MILLIGRAM, QD (300 MG DAILY)
  5. BISOPROLOL FUMARATE [Concomitant]
     Active Substance: BISOPROLOL FUMARATE
     Indication: Hypertension
     Dosage: 2.5 MILLIGRAM, QD (2.5 MG DAILY)
  6. PANTOPRAZOLE SODIUM [Concomitant]
     Active Substance: PANTOPRAZOLE SODIUM
     Indication: Gastric ulcer
     Dosage: 20 MILLIGRAM, QD (20 MG DAILY)
  7. CANRENOATE POTASSIUM [Concomitant]
     Active Substance: CANRENOATE POTASSIUM
     Indication: Cardiac failure
     Dosage: 25 MILLIGRAM, QD (25 MG DAILY)

REACTIONS (3)
  - Sopor [Recovered/Resolved]
  - Bradypnoea [Recovered/Resolved]
  - Drug interaction [Recovered/Resolved]

NARRATIVE: CASE EVENT DATE: 20250316
